FAERS Safety Report 17893598 (Version 1)
Quarter: 2020Q2

REPORT INFORMATION
  Report Type: Spontaneous
  Country: FR (occurrence: FR)
  Receive Date: 20200615
  Receipt Date: 20200615
  Transmission Date: 20200714
  Serious: Yes (Death, Congenital Anomaly)
  Sender: FDA-Public Use
  Company Number: FR-CADILA HEALTHCARE LIMITED-FR-ZYDUS-023296

PATIENT

DRUGS (2)
  1. AZITHROMYCIN ANHYDROUS. [Suspect]
     Active Substance: AZITHROMYCIN ANHYDROUS
     Indication: PROPHYLAXIS AGAINST HIV INFECTION
     Dosage: 1 GRAM,(INTERVAL :1 DAYS)
     Route: 064
     Dates: start: 20180315
  2. EMTRICITABINE,TENOFOVIR DISOPROXIL (FUMARATE DE) [Suspect]
     Active Substance: EMTRICITABINE\TENOFOVIR DISOPROXIL FUMARATE
     Indication: PROPHYLAXIS AGAINST HIV INFECTION
     Dosage: 1 DOSAGE FORM,(INTERVAL :1 DAYS)
     Route: 064
     Dates: start: 20180313, end: 20180415

REACTIONS (4)
  - Abortion induced [Fatal]
  - Foetal exposure during pregnancy [Fatal]
  - Limb deformity [Fatal]
  - Foetal malformation [Fatal]

NARRATIVE: CASE EVENT DATE: 20180620
